FAERS Safety Report 6589376-7 (Version None)
Quarter: 2010Q1

REPORT INFORMATION
  Report Type: 
  Country: None (occurrence: None)
  Receive Date: 20100218
  Receipt Date: 20100212
  Transmission Date: 20100710
  Serious: Yes (Death, Hospitalization)
  Sender: FDA-Public Use
  Company Number: FR-SANOFI-AVENTIS-2010SA008202

PATIENT
  Age: 48 Year
  Sex: Female

DRUGS (6)
  1. LOVENOX [Suspect]
     Indication: THROMBOSIS PROPHYLAXIS
     Route: 058
     Dates: start: 20091016, end: 20091106
  2. GEMZAR [Suspect]
     Route: 042
     Dates: start: 20091027, end: 20091027
  3. GEMZAR [Suspect]
     Route: 042
     Dates: start: 20091103, end: 20091103
  4. GEMZAR [Suspect]
     Route: 042
     Dates: start: 20091119, end: 20091119
  5. FUROSEMIDE [Concomitant]
     Indication: DRUG USE FOR UNKNOWN INDICATION
     Dates: start: 20091027
  6. DEPAKENE [Concomitant]
     Indication: DRUG USE FOR UNKNOWN INDICATION
     Dates: start: 20090929

REACTIONS (3)
  - ANAEMIA [None]
  - RECTAL HAEMORRHAGE [None]
  - THROMBOCYTOPENIA [None]
